FAERS Safety Report 9462211 (Version 1)
Quarter: 2013Q3

REPORT INFORMATION
  Report Type: Spontaneous
  Country: FR (occurrence: FR)
  Receive Date: 20130816
  Receipt Date: 20130816
  Transmission Date: 20140515
  Serious: Yes (Death, Congenital Anomaly)
  Sender: FDA-Public Use
  Company Number: FR-ASTRAZENECA-2013SE63043

PATIENT
  Age: 0 Week
  Sex: Female

DRUGS (2)
  1. ATACAND [Suspect]
     Route: 064
     Dates: end: 201306
  2. METFORMIN [Suspect]
     Route: 064
     Dates: end: 201306

REACTIONS (6)
  - Oligohydramnios [Fatal]
  - Renal failure [Fatal]
  - Pulmonary hypoplasia [Fatal]
  - Head deformity [Fatal]
  - Hypotelorism of orbit [Fatal]
  - Cardiomegaly [Unknown]
